FAERS Safety Report 7770767 (Version 3)
Quarter: 2013Q4

REPORT INFORMATION
  Report Type: Spontaneous
  Country: GB (occurrence: None)
  Receive Date: 20101230
  Receipt Date: 20131113
  Transmission Date: 20140711
  Serious: Yes (Hospitalization)
  Sender: FDA-Public Use
  Company Number: 2010178393

PATIENT
  Age: 54 Year
  Sex: Male

DRUGS (7)
  1. DALTEPARIN SODIUM [Suspect]
     Indication: LUNG NEOPLASM MALIGNANT
     Dates: start: 20100923, end: 20101214
  2. LANSOPRAZOLE (LANSOPRAZOLE) [Concomitant]
  3. METFORMIN (METFORMIN) [Concomitant]
  4. PARACETAMOL (PARACETAMOL) [Concomitant]
  5. TRAMADOL (TRAMADOL) [Concomitant]
  6. ROSUVASTATIN (ROSUVASTATIN) [Concomitant]
  7. POTASSIUM CHLORIDE (POTASSIUM CHLORIDE) [Concomitant]

REACTIONS (1)
  - Pancytopenia [None]
